FAERS Safety Report 6741802-6 (Version None)
Quarter: 2010Q2

REPORT INFORMATION
  Report Type: 
  Country: None (occurrence: None)
  Receive Date: 20100526
  Receipt Date: 20100511
  Transmission Date: 20101027
  Serious: Yes (Other)
  Sender: FDA-Public Use
  Company Number: US-ROCHE-704133

PATIENT
  Sex: Female
  Weight: 1.8 kg

DRUGS (10)
  1. MYCOPHENOLATE MOFETIL [Suspect]
     Indication: TRANSPLANT
     Route: 064
     Dates: end: 20071231
  2. TACROLIMUS [Concomitant]
     Indication: TRANSPLANT
     Dates: end: 20071231
  3. TACROLIMUS [Concomitant]
     Dates: start: 20071231, end: 20080131
  4. TACROLIMUS [Concomitant]
     Dates: start: 20080131, end: 20080714
  5. TACROLIMUS [Concomitant]
     Dates: start: 20080714
  6. AZATHIOPRINE SODIUM [Concomitant]
     Indication: TRANSPLANT
     Dosage: TAKEN DAILY
     Dates: start: 20071231, end: 20080723
  7. PREDNISONE TAB [Concomitant]
     Indication: TRANSPLANT
     Dosage: TAKEN DAILY
  8. LABETALOL HCL [Concomitant]
     Indication: HYPERTENSION
  9. COUMADIN [Concomitant]
     Dates: end: 20071231
  10. LOVENOX [Concomitant]
     Dates: start: 20071231

REACTIONS (2)
  - PREMATURE BABY [None]
  - VENTRICULAR SEPTAL DEFECT [None]
